FAERS Safety Report 4738627-X (Version None)
Quarter: 2005Q3

REPORT INFORMATION
  Report Type: 
  Country: None (occurrence: None)
  Receive Date: 20050803
  Receipt Date: 20050711
  Transmission Date: 20060218
  Serious: Yes (Life-Threatening, Hospitalization, Other)
  Sender: FDA-Public Use
  Company Number: EWC050644688

PATIENT
  Age: 31 Year
  Sex: Male

DRUGS (4)
  1. ZYPREXA [Suspect]
     Indication: MANIA
     Dosage: 20 MG/1 DAY
     Dates: start: 20050531, end: 20050628
  2. ZYPREXA [Suspect]
     Indication: PSYCHOTIC DISORDER
     Dosage: 20 MG/1 DAY
     Dates: start: 20050531, end: 20050628
  3. DEPAKENE [Concomitant]
  4. LORAZEPAM [Concomitant]

REACTIONS (8)
  - BRADYCARDIA [None]
  - DEPRESSED LEVEL OF CONSCIOUSNESS [None]
  - FALL [None]
  - FATIGUE [None]
  - HYPOTENSION [None]
  - MANIA [None]
  - SEDATION [None]
  - UNRESPONSIVE TO VERBAL STIMULI [None]
